FAERS Safety Report 5168903-0 (Version None)
Quarter: 2006Q4

REPORT INFORMATION
  Report Type: 
  Country: None (occurrence: None)
  Receive Date: 20061206
  Receipt Date: 20061206
  Transmission Date: 20070319
  Serious: Yes (Hospitalization)
  Sender: FDA-Public Use
  Company Number: None

PATIENT
  Sex: Male
  Weight: 125 kg

DRUGS (5)
  1. PACLITAXEL [Suspect]
     Indication: SMALL CELL LUNG CANCER STAGE UNSPECIFIED
     Dosage: 75MG/M2 DAYS 1 + 8 IV Q 21 DAYS
     Route: 042
     Dates: start: 20061120, end: 20061127
  2. IRINOTECAN HCL [Suspect]
     Indication: SMALL CELL LUNG CANCER STAGE UNSPECIFIED
     Dosage: 50 MG/M2 DAYS 1 + 8 IV Q 21 DAYS
     Route: 042
     Dates: start: 20061120, end: 20061127
  3. OXYCONTIN [Concomitant]
  4. OXY IR [Concomitant]
  5. ALLOPURINOL [Concomitant]

REACTIONS (5)
  - DISEASE PROGRESSION [None]
  - PNEUMONIA [None]
  - RESPIRATORY FAILURE [None]
  - SMALL CELL LUNG CANCER METASTATIC [None]
  - TACHYCARDIA [None]
